FAERS Safety Report 8093339-2 (Version None)
Quarter: 2012Q1

REPORT INFORMATION
  Report Type: 
  Country: None (occurrence: None)
  Receive Date: 20120128
  Receipt Date: 20111021
  Transmission Date: 20120608
  Serious: No
  Sender: FDA-Public Use
  Company Number: US-ABBOTT-11P-163-0848353-00

PATIENT
  Age: 17 Year
  Sex: Female

DRUGS (3)
  1. HUMIRA [Suspect]
     Indication: CROHN'S DISEASE
     Dosage: SECONDARY LOADING DOSE
     Dates: start: 20110727
  2. HUMIRA [Suspect]
     Route: 058
  3. OMEPRAZOLE [Concomitant]
     Indication: PRODUCT USED FOR UNKNOWN INDICATION

REACTIONS (8)
  - OROPHARYNGEAL PAIN [None]
  - ANXIETY [None]
  - UNEVALUABLE EVENT [None]
  - DEPRESSION [None]
  - GASTROOESOPHAGEAL REFLUX DISEASE [None]
  - OESOPHAGEAL CANDIDIASIS [None]
  - INFECTION [None]
  - ABDOMINAL PAIN [None]
